FAERS Safety Report 24613292 (Version 2)
Quarter: 2024Q4

REPORT INFORMATION
  Report Type: Report from Study
  Country: PR (occurrence: PR)
  Receive Date: 20241113
  Receipt Date: 20241206
  Transmission Date: 20250115
  Serious: Yes (Other)
  Sender: PFIZER
  Company Number: PR-PFIZER INC-202400298690

PATIENT
  Age: 91 Year
  Sex: Female

DRUGS (5)
  1. IBRANCE [Suspect]
     Active Substance: PALBOCICLIB
     Dosage: 75 MGS PO (PER ORAL) DAILY 21 DAYS ON + 7 DAYS OFF
     Route: 048
     Dates: start: 202409
  2. OPDIVO [Suspect]
     Active Substance: NIVOLUMAB
     Dosage: UNK
  3. ANASTROZOLE [Concomitant]
     Active Substance: ANASTROZOLE
     Dosage: UNK
  4. FULVESTRANT [Concomitant]
     Active Substance: FULVESTRANT
     Dosage: UNK
  5. LANTUS [Concomitant]
     Active Substance: INSULIN GLARGINE
     Dosage: UNK
     Route: 058

REACTIONS (13)
  - Diabetes mellitus [Not Recovered/Not Resolved]
  - Asthenia [Not Recovered/Not Resolved]
  - Blood glucose fluctuation [Not Recovered/Not Resolved]
  - Dizziness [Not Recovered/Not Resolved]
  - Somnolence [Not Recovered/Not Resolved]
  - Headache [Unknown]
  - Dyspepsia [Unknown]
  - Hunger [Unknown]
  - Chest discomfort [Unknown]
  - Musculoskeletal discomfort [Unknown]
  - Alopecia [Unknown]
  - Condition aggravated [Unknown]
  - Fatigue [Unknown]
